FAERS Safety Report 10551604 (Version 1)
Quarter: 2014Q4

REPORT INFORMATION
  Report Type: Spontaneous
  Country: GB (occurrence: GB)
  Receive Date: 20141029
  Receipt Date: 20141029
  Transmission Date: 20150529
  Serious: Yes (Hospitalization, Other)
  Sender: FDA-Public Use
  Company Number: GB-TEVA-516899ISR

PATIENT
  Sex: Female

DRUGS (5)
  1. CYCLIZINE [Suspect]
     Active Substance: CYCLIZINE
     Indication: NAUSEA
     Dosage: 50MG THREE TIMES A DAY FOR 5 DAYS THEN REDUCED TO 25MG THREE TIMES A DAY.
     Route: 048
     Dates: start: 20140908, end: 20140910
  2. OXYCODONE [Concomitant]
     Active Substance: OXYCODONE
  3. CYCLIZINE [Suspect]
     Active Substance: CYCLIZINE
     Indication: NAUSEA
     Dosage: 150 MILLIGRAM DAILY;
     Route: 048
     Dates: start: 20140903, end: 20140907
  4. ACICLOVIR [Suspect]
     Active Substance: ACYCLOVIR
     Indication: HERPES ZOSTER
     Dates: start: 20140903
  5. AMITRIPTYLINE [Concomitant]
     Active Substance: AMITRIPTYLINE

REACTIONS (2)
  - Myoclonus [Recovered/Resolved]
  - Akinesia [Recovered/Resolved]

NARRATIVE: CASE EVENT DATE: 20140906
